FAERS Safety Report 6471207-7 (Version None)
Quarter: 2009Q4

REPORT INFORMATION
  Report Type: 
  Country: None (occurrence: None)
  Receive Date: 20091203
  Receipt Date: 20080306
  Transmission Date: 20100525
  Serious: Yes (Hospitalization)
  Sender: FDA-Public Use
  Company Number: JP-ELI_LILLY_AND_COMPANY-JP200801006427

PATIENT
  Sex: Male

DRUGS (8)
  1. GEMZAR [Suspect]
     Indication: PANCREATIC CARCINOMA STAGE IV
     Dosage: 1460 MG, OTHER
     Route: 042
     Dates: start: 20070925, end: 20080118
  2. GEMZAR [Suspect]
     Dosage: 1150 MG, OTHER
     Route: 042
     Dates: start: 20080201, end: 20080201
  3. GEMZAR [Suspect]
     Dosage: 1460 MG, OTHER
     Route: 042
     Dates: start: 20080213
  4. TAKEPRON [Concomitant]
     Indication: PROPHYLAXIS
     Dosage: 30 MG, DAILY (1/D)
     Route: 048
     Dates: start: 20070927
  5. OPSO [Concomitant]
     Indication: PAIN
     Dosage: 5 G, AS NEEDED
     Route: 048
     Dates: start: 20070912
  6. OPSO [Concomitant]
     Dosage: 5 MG, 3/D
     Route: 048
     Dates: start: 20071025
  7. NASEA [Concomitant]
     Indication: PROPHYLAXIS
     Dosage: 0.1 MG, OTHER
     Route: 048
     Dates: start: 20071010
  8. DECADRON [Concomitant]
     Indication: PROPHYLAXIS
     Dosage: 2 MG, OTHER
     Route: 048
     Dates: start: 20071130

REACTIONS (13)
  - ALANINE AMINOTRANSFERASE INCREASED [None]
  - ASPARTATE AMINOTRANSFERASE INCREASED [None]
  - CANCER PAIN [None]
  - CANDIDIASIS [None]
  - CONSTIPATION [None]
  - DECREASED APPETITE [None]
  - DYSGEUSIA [None]
  - ECZEMA [None]
  - LIBIDO INCREASED [None]
  - LIVER DISORDER [None]
  - MALAISE [None]
  - NARCOTIC INTOXICATION [None]
  - SOMNOLENCE [None]
